FAERS Safety Report 8057671-0 (Version None)
Quarter: 2012Q1

REPORT INFORMATION
  Report Type: 
  Country: None (occurrence: None)
  Receive Date: 20120120
  Receipt Date: 20120109
  Transmission Date: 20120608
  Serious: No
  Sender: FDA-Public Use
  Company Number: US-BIOGENIDEC-2012BI001199

PATIENT
  Sex: Female

DRUGS (5)
  1. AMPYRA [Concomitant]
     Indication: GAIT DISTURBANCE
     Dates: start: 20101001, end: 20110401
  2. MEDICATION (NOS) [Concomitant]
     Indication: PRODUCT USED FOR UNKNOWN INDICATION
  3. TYSABRI [Suspect]
     Indication: MULTIPLE SCLEROSIS
     Route: 042
     Dates: start: 20050201
  4. AVONEX [Concomitant]
     Indication: MULTIPLE SCLEROSIS
     Route: 030
     Dates: start: 19961101, end: 20060630
  5. TYSABRI [Suspect]
     Route: 042
     Dates: start: 20060915

REACTIONS (2)
  - POOR VENOUS ACCESS [None]
  - DRY MOUTH [None]
